FAERS Safety Report 9472987 (Version 1)
Quarter: 2013Q3

REPORT INFORMATION
  Report Type: Spontaneous
  Country: US (occurrence: US)
  Receive Date: 20130823
  Receipt Date: 20130823
  Transmission Date: 20140515
  Serious: No
  Sender: FDA-Public Use
  Company Number: US-BRISTOL-MYERS SQUIBB COMPANY-17308982

PATIENT
  Age: 52 Year
  Sex: Male
  Weight: 90.7 kg

DRUGS (6)
  1. SPRYCEL (CML) TABS 70 MG [Suspect]
     Indication: CHRONIC MYELOID LEUKAEMIA
     Dates: start: 201206
  2. PRILOSEC [Concomitant]
  3. OXYCODONE [Concomitant]
  4. XANAX [Concomitant]
  5. SEROQUEL [Concomitant]
  6. PROCHLORPERAZINE [Concomitant]

REACTIONS (1)
  - Arthralgia [Unknown]
